FAERS Safety Report 26008635 (Version 1)
Quarter: 2025Q4

REPORT INFORMATION
  Report Type: Spontaneous
  Country: US (occurrence: US)
  Receive Date: 20251106
  Receipt Date: 20251106
  Transmission Date: 20260117
  Serious: No
  Sender: ABBVIE
  Company Number: US-ABBVIE-6536470

PATIENT
  Age: 56 Year
  Sex: Male

DRUGS (1)
  1. SKYRIZI [Suspect]
     Active Substance: RISANKIZUMAB-RZAA
     Indication: Psoriasis
     Dosage: FORM STRENGTH: 150 MILLIGRAM/MILLILITERS
     Route: 058

REACTIONS (2)
  - Injection site haemorrhage [Unknown]
  - Injection site discharge [Not Recovered/Not Resolved]

NARRATIVE: CASE EVENT DATE: 20251001
